FAERS Safety Report 6135485-6 (Version None)
Quarter: 2009Q1

REPORT INFORMATION
  Report Type: 
  Country: None (occurrence: None)
  Receive Date: 20090327
  Receipt Date: 20090320
  Transmission Date: 20090719
  Serious: Yes (Hospitalization)
  Sender: FDA-Public Use
  Company Number: A0775505A

PATIENT
  Age: 56 Year
  Sex: Male
  Weight: 107.3 kg

DRUGS (2)
  1. AVANDIA [Suspect]
     Dosage: 4MG TWICE PER DAY
     Route: 065
     Dates: start: 20050101, end: 20070101
  2. GLUCOTROL [Concomitant]
     Dates: start: 19950101

REACTIONS (1)
  - MYOCARDIAL INFARCTION [None]
